FAERS Safety Report 5356563-5 (Version None)
Quarter: 2007Q2

REPORT INFORMATION
  Report Type: 
  Country: None (occurrence: None)
  Receive Date: 20070612
  Receipt Date: 20070528
  Transmission Date: 20071010
  Serious: Yes (Death)
  Sender: FDA-Public Use
  Company Number: 2007JP002383

PATIENT
  Age: 5 Year
  Sex: Male

DRUGS (2)
  1. PROGRAF [Suspect]
     Indication: CORD BLOOD TRANSPLANT THERAPY
     Dosage: 0.02 MG/KG, CONTINUOUS, IV DRIP
     Route: 041
  2. PREDNISOLONE [Concomitant]

REACTIONS (1)
  - OBLITERATIVE BRONCHIOLITIS [None]
